FAERS Safety Report 20781483 (Version 2)
Quarter: 2023Q1

REPORT INFORMATION
  Report Type: Report from Study
  Country: CA (occurrence: CA)
  Receive Date: 20220504
  Receipt Date: 20230131
  Transmission Date: 20230418
  Serious: Yes (Hospitalization, Other)
  Sender: FDA-Public Use
  Company Number: CA-SHIRE-CA201941267AA

PATIENT
  Age: 68 Year
  Sex: Female

DRUGS (2)
  1. HUMAN IMMUNOGLOBULIN G [Suspect]
     Active Substance: HUMAN IMMUNOGLOBULIN G
     Indication: Primary immunodeficiency syndrome
     Dosage: 6 GRAM, 1/WEEK
     Route: 058
     Dates: start: 20191126
  2. HUMAN IMMUNOGLOBULIN G [Suspect]
     Active Substance: HUMAN IMMUNOGLOBULIN G
     Dosage: 10 GRAM, 1/WEEK
     Route: 050
     Dates: start: 20191126

REACTIONS (3)
  - Panic attack [Unknown]
  - Somnolence [Unknown]
  - Fatigue [Unknown]

NARRATIVE: CASE EVENT DATE: 20190101
